FAERS Safety Report 8473839-3 (Version None)
Quarter: 2012Q2

REPORT INFORMATION
  Report Type: 
  Country: None (occurrence: None)
  Receive Date: 20120628
  Receipt Date: 20120517
  Transmission Date: 20120825
  Serious: Yes (Other)
  Sender: FDA-Public Use
  Company Number: US-MYLANLABS-2011S1025929

PATIENT
  Age: 20 Year
  Sex: Female
  Weight: 52.16 kg

DRUGS (5)
  1. CLOZAPINE [Suspect]
     Indication: SCHIZOAFFECTIVE DISORDER
     Route: 048
     Dates: start: 20111001, end: 20120116
  2. DEPAKOTE [Concomitant]
     Dosage: 500MG TABLETS
     Route: 048
  3. BENZTROPINE MESYLATE [Concomitant]
     Dosage: 2MG TABLETS
     Route: 048
  4. CLOZAPINE [Suspect]
     Route: 048
     Dates: start: 20120120
  5. PROZAC [Concomitant]
     Route: 048

REACTIONS (2)
  - LEUKOPENIA [None]
  - GRANULOCYTOPENIA [None]
